FAERS Safety Report 21949427 (Version 3)
Quarter: 2023Q2

REPORT INFORMATION
  Report Type: Report from Study
  Country: NL (occurrence: NL)
  Receive Date: 20230203
  Receipt Date: 20230426
  Transmission Date: 20230721
  Serious: Yes (Hospitalization)
  Sender: FDA-Public Use
  Company Number: NL-VER-202300005

PATIENT
  Age: 74 Year
  Sex: Male

DRUGS (4)
  1. TRIPTORELIN PAMOATE [Suspect]
     Active Substance: TRIPTORELIN PAMOATE
     Indication: Prostate cancer
     Route: 030
     Dates: start: 20230126
  2. TRIPTORELIN PAMOATE [Suspect]
     Active Substance: TRIPTORELIN PAMOATE
     Indication: Prostate cancer
     Route: 030
     Dates: start: 20220713, end: 20220713
  3. TRIPTORELIN PAMOATE [Suspect]
     Active Substance: TRIPTORELIN PAMOATE
     Indication: Prostate cancer
     Route: 030
     Dates: start: 20230113, end: 20230113
  4. TRIPTORELIN PAMOATE [Suspect]
     Active Substance: TRIPTORELIN PAMOATE
     Indication: Prostate cancer
     Route: 030
     Dates: start: 20210112, end: 20210112

REACTIONS (1)
  - Herpes zoster [Not Recovered/Not Resolved]
